FAERS Safety Report 6057423-7 (Version None)
Quarter: 2009Q1

REPORT INFORMATION
  Report Type: 
  Country: None (occurrence: None)
  Receive Date: 20090126
  Receipt Date: 20090107
  Transmission Date: 20090719
  Serious: Yes (Death)
  Sender: FDA-Public Use
  Company Number: B0553722A

PATIENT
  Age: 42 Year
  Sex: Male

DRUGS (6)
  1. DIGOXIN [Suspect]
     Dosage: ORAL
     Route: 048
  2. COCAINE (FORMULATION UNKNOWN) (COCAINE) [Suspect]
  3. ENALAPRIL MALEATE [Suspect]
  4. HYDROCHLOROTHIAZIDE [Suspect]
  5. CLOPIDOGREL [Suspect]
  6. ETHANOL (FORMULATION UNKNOWN) (ALCOHOL) [Suspect]

REACTIONS (2)
  - CARDIO-RESPIRATORY ARREST [None]
  - COMPLETED SUICIDE [None]
